FAERS Safety Report 23601338 (Version 1)
Quarter: 2024Q1

REPORT INFORMATION
  Report Type: Report from Study
  Country: US (occurrence: US)
  Receive Date: 20240306
  Receipt Date: 20240306
  Transmission Date: 20240410
  Serious: Yes (Hospitalization)
  Sender: FDA-Public Use
  Company Number: US-GILEAD-2024-0664133

PATIENT
  Sex: Female

DRUGS (19)
  1. AZTREONAM LYSINE [Suspect]
     Active Substance: AZTREONAM LYSINE
     Indication: Cystic fibrosis
     Dosage: 75 MG, TID (28 DAYS ON AND 28 DAYS OFF)
     Route: 055
     Dates: start: 202106
  2. AZTREONAM LYSINE [Suspect]
     Active Substance: AZTREONAM LYSINE
     Indication: Pseudomonas infection
  3. PULMOZYME [Concomitant]
     Active Substance: DORNASE ALFA
  4. JARDIANCE [Concomitant]
     Active Substance: EMPAGLIFLOZIN
  5. TORSEMIDE [Concomitant]
     Active Substance: TORSEMIDE
  6. LYRICA [Concomitant]
     Active Substance: PREGABALIN
  7. CIPROFLOXACIN [Concomitant]
     Active Substance: CIPROFLOXACIN
  8. TRIKAFTA [Concomitant]
     Active Substance: ELEXACAFTOR\IVACAFTOR\TEZACAFTOR
  9. AZITHROMYCIN [Concomitant]
     Active Substance: AZITHROMYCIN
  10. ALBUTEROL SULFATE [Concomitant]
     Active Substance: ALBUTEROL SULFATE
  11. PEPCID [Concomitant]
     Active Substance: FAMOTIDINE
  12. CLONIDINE [Concomitant]
     Active Substance: CLONIDINE
  13. ALBUTEROL\IPRATROPIUM [Concomitant]
     Active Substance: ALBUTEROL\IPRATROPIUM
  14. CLONAZEPAM [Concomitant]
     Active Substance: CLONAZEPAM
  15. NAPROXEN [Concomitant]
     Active Substance: NAPROXEN
  16. BETHANECHOL CHLORIDE [Concomitant]
     Active Substance: BETHANECHOL CHLORIDE
  17. ALPRAZOLAM [Concomitant]
     Active Substance: ALPRAZOLAM
  18. COMPAZINE [Concomitant]
     Active Substance: PROCHLORPERAZINE MALEATE
  19. SODIUM CHLORIDE [Concomitant]
     Active Substance: SODIUM CHLORIDE
     Dosage: 3.5% VIAL-NEB

REACTIONS (2)
  - Chest pain [Not Recovered/Not Resolved]
  - Blood sodium decreased [Recovered/Resolved]
